FAERS Safety Report 4976870-5 (Version None)
Quarter: 2006Q2

REPORT INFORMATION
  Report Type: 
  Country: None (occurrence: None)
  Receive Date: 20060413
  Receipt Date: 20060405
  Transmission Date: 20061013
  Serious: Yes (Hospitalization, Other)
  Sender: FDA-Public Use
  Company Number: 2006045965

PATIENT
  Age: 63 Year
  Sex: Female
  Weight: 70.3075 kg

DRUGS (15)
  1. TIKOSYN [Suspect]
     Indication: ATRIAL FIBRILLATION
     Dosage: 0.5 MG (0.25 MG, 2 IN 1 D)
     Dates: start: 20060202
  2. DIGOXIN [Concomitant]
  3. ELAVIL [Concomitant]
  4. PROTONIX [Concomitant]
  5. REGLAN [Concomitant]
  6. CYMBALTA [Concomitant]
  7. AVAPRO [Concomitant]
  8. HYDROCORTISONE [Concomitant]
  9. THYROID TAB [Concomitant]
  10. INSULIN [Concomitant]
  11. ZETIA [Concomitant]
  12. COUMADIN [Concomitant]
  13. LASIX [Concomitant]
  14. ALDACTONE [Concomitant]
  15. AMIODARONE [Concomitant]

REACTIONS (4)
  - CELLULITIS [None]
  - INCORRECT DRUG ADMINISTRATION RATE [None]
  - INSOMNIA [None]
  - TREATMENT NONCOMPLIANCE [None]
